FAERS Safety Report 5688093-5 (Version None)
Quarter: 2008Q1

REPORT INFORMATION
  Report Type: 
  Country: None (occurrence: None)
  Receive Date: 20080327
  Receipt Date: 20080311
  Transmission Date: 20080703
  Serious: Yes (Hospitalization)
  Sender: FDA-Public Use
  Company Number: TRP-01042_2008

PATIENT
  Sex: Female
  Weight: 48.0813 kg

DRUGS (6)
  1. RIBASHERE/RIBAVIRIN/THREE RIVERS PHARMA 2B/SCHERING-PLOUGH [Suspect]
     Indication: HEPATITIS C
     Dosage: (800 MG ORAL)
     Route: 048
     Dates: start: 20070913, end: 20080110
  2. PEG-INTRON [Suspect]
     Indication: HEPATITIS C
     Dosage: (64 UG 1X/WEEK SUBCUTANEOUS)
     Route: 058
     Dates: start: 20070913, end: 20080110
  3. FUROSEMIDE [Concomitant]
  4. TOPIRAMATE [Concomitant]
  5. PERCOCET [Concomitant]
  6. CULTURELLE [Concomitant]

REACTIONS (18)
  - ALPHA HAEMOLYTIC STREPTOCOCCAL INFECTION [None]
  - BLOOD GLUCOSE INCREASED [None]
  - BLOOD PHOSPHORUS DECREASED [None]
  - BRAIN HERNIATION [None]
  - CAROTID ARTERY STENOSIS [None]
  - CEREBRAL ARTERY EMBOLISM [None]
  - CEREBRAL ARTERY THROMBOSIS [None]
  - CEREBRAL INFARCTION [None]
  - CEREBROVASCULAR ACCIDENT [None]
  - CHEST X-RAY ABNORMAL [None]
  - CULTURE URINE POSITIVE [None]
  - DEEP VEIN THROMBOSIS [None]
  - DYSPHAGIA [None]
  - HAEMOGLOBIN DECREASED [None]
  - HEMIANOPIA HOMONYMOUS [None]
  - HEMISENSORY NEGLECT [None]
  - INTRACRANIAL PRESSURE INCREASED [None]
  - MITRAL VALVE INCOMPETENCE [None]
